FAERS Safety Report 23944562 (Version 1)
Quarter: 2024Q2

REPORT INFORMATION
  Report Type: Spontaneous
  Country: GR (occurrence: GR)
  Receive Date: 20240606
  Receipt Date: 20240606
  Transmission Date: 20240715
  Serious: Yes (Other)
  Sender: FDA-Public Use
  Company Number: GR-SUN PHARMACEUTICAL INDUSTRIES LTD-2024R1-449645

PATIENT
  Age: 34 Year
  Sex: Female

DRUGS (3)
  1. ASPIRIN [Suspect]
     Active Substance: ASPIRIN
     Indication: Thrombotic thrombocytopenic purpura
     Dosage: 100 MILLIGRAM, DAILY
     Route: 065
  2. PREDNISOLONE [Suspect]
     Active Substance: PREDNISOLONE
     Indication: Thrombotic microangiopathy
     Dosage: 1 MILLIGRAM/KILOGRAM, QD
     Route: 065
  3. RITUXIMAB [Suspect]
     Active Substance: RITUXIMAB
     Indication: Thrombotic thrombocytopenic purpura
     Dosage: UNK, WEEKLY
     Route: 065

REACTIONS (5)
  - Abdominal pain [Recovered/Resolved]
  - Disease recurrence [Unknown]
  - Exposure during pregnancy [Unknown]
  - Platelet count decreased [Unknown]
  - Petechiae [Unknown]
